FAERS Safety Report 6458621-0 (Version None)
Quarter: 2009Q4

REPORT INFORMATION
  Report Type: 
  Country: None (occurrence: None)
  Receive Date: 20091126
  Receipt Date: 20091116
  Transmission Date: 20100525
  Serious: Yes (Death, Life-Threatening, Other)
  Sender: FDA-Public Use
  Company Number: DE-JNJFOC-20091104211

PATIENT
  Age: 87 Year
  Sex: Male

DRUGS (16)
  1. RISPERDAL [Suspect]
     Indication: DRUG USE FOR UNKNOWN INDICATION
     Route: 048
     Dates: end: 20080117
  2. HALDOL [Suspect]
     Route: 048
  3. HALDOL [Suspect]
     Indication: DRUG USE FOR UNKNOWN INDICATION
     Route: 048
  4. BELOC ZOK [Interacting]
     Indication: DRUG USE FOR UNKNOWN INDICATION
     Route: 048
  5. BENALAPRIL [Interacting]
     Route: 048
     Dates: end: 20080207
  6. BENALAPRIL [Interacting]
     Route: 048
     Dates: end: 20080207
  7. BENALAPRIL [Interacting]
     Indication: DRUG USE FOR UNKNOWN INDICATION
     Route: 048
     Dates: end: 20080207
  8. TORSEMIDE [Interacting]
     Indication: DRUG USE FOR UNKNOWN INDICATION
     Route: 048
  9. DOMINAL [Interacting]
     Route: 048
     Dates: start: 20080114
  10. DOMINAL [Interacting]
     Route: 048
     Dates: start: 20080114
  11. DOMINAL [Interacting]
     Route: 048
     Dates: start: 20080114
  12. DOMINAL [Interacting]
     Route: 048
     Dates: start: 20080114
  13. DOMINAL [Interacting]
     Indication: DRUG USE FOR UNKNOWN INDICATION
     Route: 048
     Dates: start: 20080114
  14. MELNEURIN [Interacting]
     Indication: DRUG USE FOR UNKNOWN INDICATION
     Route: 048
     Dates: start: 20080118, end: 20080206
  15. ASPIRIN [Concomitant]
     Route: 048
  16. PANTOZOL [Concomitant]
     Route: 048
     Dates: end: 20080124

REACTIONS (4)
  - ALTERED STATE OF CONSCIOUSNESS [None]
  - DIZZINESS [None]
  - DRUG INTERACTION [None]
  - HYPOTENSION [None]
